FAERS Safety Report 15623605 (Version 4)
Quarter: 2019Q1

REPORT INFORMATION
  Report Type: Spontaneous
  Country: US (occurrence: US)
  Receive Date: 20181115
  Receipt Date: 20190107
  Transmission Date: 20190417
  Serious: Yes (Other)
  Sender: FDA-Public Use
  Company Number: US-BAYER-2018-209275

PATIENT
  Age: 31 Year
  Sex: Male

DRUGS (3)
  1. KOGENATE FS [Suspect]
     Active Substance: ANTIHEMOPHILIC FACTOR, HUMAN RECOMBINANT
     Indication: PROPHYLAXIS
     Dosage: 3700 U, PRN
     Route: 042
     Dates: start: 20181219
  2. KOGENATE FS [Suspect]
     Active Substance: ANTIHEMOPHILIC FACTOR, HUMAN RECOMBINANT
     Indication: PROPHYLAXIS
     Dosage: 2350 U, UNK
     Route: 042
     Dates: start: 20180810
  3. KOGENATE FS [Suspect]
     Active Substance: ANTIHEMOPHILIC FACTOR, HUMAN RECOMBINANT
     Indication: HAEMORRHAGE
     Dosage: 2350 U, PRN ( 1 MAJOR DOSE FOR ELBOW BLEED)
     Route: 042
     Dates: start: 20180810

REACTIONS (4)
  - Haemarthrosis [None]
  - Haemarthrosis [None]
  - Treatment noncompliance [None]
  - Nephrolithiasis [None]

NARRATIVE: CASE EVENT DATE: 2018
